APPROVED DRUG PRODUCT: GYNE-LOTRIMIN 3 COMBINATION PACK
Active Ingredient: CLOTRIMAZOLE
Strength: 1%,200MG
Dosage Form/Route: CREAM, TABLET;TOPICAL, VAGINAL
Application: N020526 | Product #002
Applicant: BAYER HEALTHCARE LLC
Approved: Jul 29, 1996 | RLD: Yes | RS: No | Type: DISCN